FAERS Safety Report 22989370 (Version 2)
Quarter: 2023Q4

REPORT INFORMATION
  Report Type: Spontaneous
  Country: SE (occurrence: SE)
  Receive Date: 20230927
  Receipt Date: 20231219
  Transmission Date: 20240110
  Serious: Yes (Other)
  Sender: FDA-Public Use
  Company Number: SE-JNJFOC-20230947066

PATIENT
  Age: 7 Year
  Sex: Male

DRUGS (7)
  1. BOSENTAN [Suspect]
     Active Substance: BOSENTAN
     Indication: Pulmonary hypertension
     Route: 065
  2. TREPROSTINIL [Concomitant]
     Active Substance: TREPROSTINIL
  3. SILDENAFIL [Concomitant]
     Active Substance: SILDENAFIL
  4. CORTISONE [Concomitant]
     Active Substance: CORTISONE
  5. PREDNISOLONE [Concomitant]
     Active Substance: PREDNISOLONE
  6. EPOPROSTENOL [Concomitant]
     Active Substance: EPOPROSTENOL
     Dosage: 15 NG/KG/MIN TREPROSTINIL
  7. TACROLIMUS [Concomitant]
     Active Substance: TACROLIMUS
     Dosage: STARTED IN LOW DOSE

REACTIONS (5)
  - Lung transplant [Unknown]
  - Syncope [Unknown]
  - Dyspnoea [Unknown]
  - Chest pain [Recovered/Resolved]
  - Muscle spasms [Unknown]

NARRATIVE: CASE EVENT DATE: 20230901
